FAERS Safety Report 5384248-8 (Version None)
Quarter: 2007Q3

REPORT INFORMATION
  Report Type: 
  Country: None (occurrence: None)
  Receive Date: 20070711
  Receipt Date: 20070709
  Transmission Date: 20080115
  Serious: Yes (Other)
  Sender: FDA-Public Use
  Company Number: GB-BRISTOL-MYERS SQUIBB COMPANY-13567169

PATIENT
  Sex: Female

DRUGS (2)
  1. ABILIFY [Suspect]
  2. VENLAFAXINE HCL [Concomitant]

REACTIONS (1)
  - ECTOPIC PREGNANCY [None]
